FAERS Safety Report 6734509-2 (Version None)
Quarter: 2010Q2

REPORT INFORMATION
  Report Type: 
  Country: None (occurrence: None)
  Receive Date: 20100520
  Receipt Date: 20100512
  Transmission Date: 20101027
  Serious: Yes (Other)
  Sender: FDA-Public Use
  Company Number: US-AMGEN-QUU409378

PATIENT
  Sex: Male

DRUGS (1)
  1. ENBREL [Suspect]
     Indication: PSORIASIS
     Route: 058
     Dates: start: 20040201, end: 20060101

REACTIONS (14)
  - ARTHRALGIA [None]
  - ARTHROGRAM ABNORMAL [None]
  - BACK PAIN [None]
  - DIABETES MELLITUS [None]
  - FALL [None]
  - HYPERTENSION [None]
  - INJECTION SITE PAIN [None]
  - JOINT CREPITATION [None]
  - JOINT SWELLING [None]
  - JOINT WARMTH [None]
  - MUSCULOSKELETAL PAIN [None]
  - PAIN [None]
  - PSORIASIS [None]
  - ROTATOR CUFF SYNDROME [None]
